FAERS Safety Report 8141206-8 (Version None)
Quarter: 2012Q1

REPORT INFORMATION
  Report Type: 
  Country: None (occurrence: None)
  Receive Date: 20120216
  Receipt Date: 20120207
  Transmission Date: 20120608
  Serious: Yes (Hospitalization, Disabling, Other)
  Sender: FDA-Public Use
  Company Number: US-SANOFI-AVENTIS-2012SA008607

PATIENT
  Sex: Male

DRUGS (1)
  1. AMBIEN [Suspect]

REACTIONS (11)
  - CARDIAC DISORDER [None]
  - SOMNAMBULISM [None]
  - FEMUR FRACTURE [None]
  - ACTIVITIES OF DAILY LIVING IMPAIRED [None]
  - LOSS OF CONSCIOUSNESS [None]
  - FALL [None]
  - PAIN [None]
  - AMNESIA [None]
  - BALANCE DISORDER [None]
  - DELUSION [None]
  - STRESS [None]
